FAERS Safety Report 16994324 (Version 6)
Quarter: 2020Q4

REPORT INFORMATION
  Report Type: Report from Study
  Country: JP (occurrence: JP)
  Receive Date: 20191105
  Receipt Date: 20201208
  Transmission Date: 20210113
  Serious: Yes (Life-Threatening, Hospitalization)
  Sender: FDA-Public Use
  Company Number: JP-BIOGEN-2019BI00801679

PATIENT
  Age: 69 Year
  Sex: Male
  Weight: 65 kg

DRUGS (5)
  1. GILENYA [Suspect]
     Active Substance: FINGOLIMOD HYDROCHLORIDE
     Indication: MULTIPLE SCLEROSIS
     Route: 065
     Dates: start: 20130905, end: 20170628
  2. TECFIDERA [Suspect]
     Active Substance: DIMETHYL FUMARATE
     Dosage: 240/120 MG/DAY
     Route: 065
     Dates: start: 20170713, end: 20170719
  3. TECFIDERA [Suspect]
     Active Substance: DIMETHYL FUMARATE
     Indication: SECONDARY PROGRESSIVE MULTIPLE SCLEROSIS
     Route: 065
     Dates: start: 20170629, end: 20170705
  4. TECFIDERA [Suspect]
     Active Substance: DIMETHYL FUMARATE
     Route: 065
     Dates: start: 20170706, end: 20170712
  5. TECFIDERA [Suspect]
     Active Substance: DIMETHYL FUMARATE
     Route: 065
     Dates: start: 20170720, end: 20190619

REACTIONS (4)
  - Lung neoplasm malignant [Unknown]
  - Lymphocyte count decreased [Recovered/Resolved]
  - Hepatocellular carcinoma [Not Recovered/Not Resolved]
  - Alanine aminotransferase increased [Recovered/Resolved]

NARRATIVE: CASE EVENT DATE: 20170727
